FAERS Safety Report 4719588-6 (Version None)
Quarter: 2005Q3

REPORT INFORMATION
  Report Type: 
  Country: None (occurrence: None)
  Receive Date: 20050721
  Receipt Date: 20040129
  Transmission Date: 20060218
  Serious: No
  Sender: FDA-Public Use
  Company Number: US-GLAXOSMITHKLINE-A0495726A

PATIENT
  Age: 77 Year
  Sex: Male
  Weight: 96.4 kg

DRUGS (6)
  1. AVANDIA [Suspect]
     Dosage: 4MG PER DAY
     Route: 048
     Dates: start: 20040122, end: 20040126
  2. ZANTAC [Concomitant]
     Route: 048
     Dates: start: 20010101
  3. ZOCOR [Concomitant]
     Route: 048
     Dates: start: 20000101
  4. TOPROL-XL [Concomitant]
     Route: 048
     Dates: start: 19950101
  5. FUROSEMIDE [Concomitant]
     Indication: DIURETIC THERAPY
     Route: 048
     Dates: start: 19950101
  6. POTASSIUM CHLORIDE [Concomitant]
     Route: 048
     Dates: start: 19950101

REACTIONS (1)
  - DIARRHOEA [None]
